FAERS Safety Report 16855883 (Version 3)
Quarter: 2022Q1

REPORT INFORMATION
  Report Type: Spontaneous
  Country: US (occurrence: US)
  Receive Date: 20190926
  Receipt Date: 20220120
  Transmission Date: 20220423
  Serious: Yes (Other)
  Sender: FDA-Public Use
  Company Number: US-PFIZER INC-2019397596

PATIENT
  Age: 73 Year
  Sex: Male

DRUGS (9)
  1. CEFUROXIME [Interacting]
     Active Substance: CEFUROXIME
     Indication: Pharyngitis streptococcal
     Dosage: UNK
  2. WARFARIN [Interacting]
     Active Substance: WARFARIN
     Indication: Deep vein thrombosis
     Dosage: 5 MG, DAILY
  3. PREDNISONE [Concomitant]
     Active Substance: PREDNISONE
     Indication: Rheumatoid arthritis
     Dosage: 40 MG, DAILY
  4. AMLODIPINE [Concomitant]
     Active Substance: AMLODIPINE BESYLATE
     Dosage: 2.5 MG, DAILY
  5. FUROSEMIDE [Concomitant]
     Active Substance: FUROSEMIDE
     Indication: Polyuria
     Dosage: 20 MG, DAILY
  6. HYDROXYCHLOROQUINE [Concomitant]
     Active Substance: HYDROXYCHLOROQUINE
     Dosage: 200 MG, UNK
  7. LOSARTAN [Concomitant]
     Active Substance: LOSARTAN
     Dosage: 50 MG, DAILY
  8. METFORMIN [Concomitant]
     Active Substance: METFORMIN HYDROCHLORIDE
     Dosage: 500 MG, DAILY
  9. SIMVASTATIN [Concomitant]
     Active Substance: SIMVASTATIN
     Dosage: 40 MG, DAILY

REACTIONS (3)
  - Renal failure [Recovering/Resolving]
  - Drug interaction [Unknown]
  - Anticoagulation drug level above therapeutic [Unknown]
